FAERS Safety Report 26001167 (Version 1)
Quarter: 2025Q4

REPORT INFORMATION
  Report Type: Spontaneous
  Country: GB (occurrence: GB)
  Receive Date: 20251105
  Receipt Date: 20251105
  Transmission Date: 20260117
  Serious: Yes (Other)
  Sender: PFIZER
  Company Number: None

PATIENT
  Age: 79 Year
  Sex: Female

DRUGS (1)
  1. DOXYCYCLINE [Suspect]
     Active Substance: DOXYCYCLINE
     Indication: Lower respiratory tract infection
     Dosage: TAKE 200 MG ON DAY 1 THEN, TAKE 100 MG EACH DAY FOLLOWING.
     Dates: start: 20251027, end: 20251030

REACTIONS (3)
  - Muscle fatigue [Recovered/Resolved]
  - Visual acuity reduced [Recovered/Resolved]
  - Fatigue [Recovered/Resolved]

NARRATIVE: CASE EVENT DATE: 20251027
